FAERS Safety Report 23805437 (Version 2)
Quarter: 2024Q2

REPORT INFORMATION
  Report Type: Report from Study
  Country: CA (occurrence: CA)
  Receive Date: 20240502
  Receipt Date: 20240625
  Transmission Date: 20240716
  Serious: Yes (Hospitalization, Disabling, Other)
  Sender: FDA-Public Use
  Company Number: CA-CELLTRION INC.-2024CA009745

PATIENT

DRUGS (14)
  1. YUFLYMA [Suspect]
     Active Substance: ADALIMUMAB-AATY
     Indication: Rheumatoid arthritis
     Dosage: 40 MG EVERY 2 WEEKS
     Route: 058
     Dates: start: 20230714
  2. CHOLECALCIFEROL [Concomitant]
     Active Substance: CHOLECALCIFEROL
  3. METHOTREXATE [Concomitant]
     Active Substance: METHOTREXATE
     Dosage: }3 MONTHS- ONGOING
  4. PLAQUENIL [Concomitant]
     Active Substance: HYDROXYCHLOROQUINE SULFATE
     Dosage: }3 MONTHS- TODAY
  5. FOLIC ACID [Concomitant]
     Active Substance: FOLIC ACID
  6. VITAMIN B12 [Concomitant]
     Active Substance: CYANOCOBALAMIN
  7. AMLODIPINE [Concomitant]
     Active Substance: AMLODIPINE BESYLATE
  8. CITALOPRAM [Concomitant]
     Active Substance: CITALOPRAM\CITALOPRAM HYDROBROMIDE
  9. CHOLESTYRAMINE [Concomitant]
     Active Substance: CHOLESTYRAMINE
  10. DICYCLOMINE [Concomitant]
     Active Substance: DICYCLOMINE HYDROCHLORIDE
  11. RIVA K [Concomitant]
  12. RABEPRAZOLE [Concomitant]
     Active Substance: RABEPRAZOLE
  13. HYLO [Concomitant]
  14. OCUNOX [OXYBUPROCAINE HYDROCHLORIDE] [Concomitant]

REACTIONS (3)
  - Gait disturbance [Not Recovered/Not Resolved]
  - Loss of personal independence in daily activities [Not Recovered/Not Resolved]
  - Surgery [Not Recovered/Not Resolved]
